FAERS Safety Report 4579548-5 (Version None)
Quarter: 2005Q1

REPORT INFORMATION
  Report Type: 
  Country: None (occurrence: None)
  Receive Date: 20050214
  Receipt Date: 20050202
  Transmission Date: 20050727
  Serious: Yes (Hospitalization)
  Sender: FDA-Public Use
  Company Number: FR-JNJFOC-20050200895

PATIENT
  Age: 46 Year
  Sex: Male

DRUGS (10)
  1. REMICADE [Suspect]
     Route: 042
  2. REMICADE [Suspect]
     Route: 042
  3. KETOPROFEN [Concomitant]
     Route: 049
  4. KETOPROFEN [Concomitant]
     Route: 049
  5. SOLIAN [Concomitant]
     Route: 049
  6. OMEPRAZOLE [Concomitant]
     Indication: ULCER
     Route: 049
  7. DEXTROPROPOXYPHENE [Concomitant]
     Route: 049
  8. DEXTROPROPOXYPHENE [Concomitant]
     Route: 049
  9. PROZAC [Concomitant]
     Indication: DEPRESSION
     Route: 049
  10. CORTANCYL [Concomitant]

REACTIONS (3)
  - DIARRHOEA [None]
  - EOSINOPHILIA [None]
  - PRURITUS [None]
